FAERS Safety Report 9832347 (Version 2)
Quarter: 2014Q1

REPORT INFORMATION
  Report Type: Spontaneous
  Country: US (occurrence: US)
  Receive Date: 20140121
  Receipt Date: 20140213
  Transmission Date: 20141002
  Serious: Yes (Death, Other)
  Sender: FDA-Public Use
  Company Number: US-GILEAD-2014-0092641

PATIENT
  Sex: Male

DRUGS (7)
  1. LETAIRIS [Suspect]
     Indication: PULMONARY ARTERIAL HYPERTENSION
     Route: 048
     Dates: start: 20111229, end: 20140113
  2. CALCIUM [Concomitant]
  3. DILTIAZEM [Concomitant]
  4. OMEPRAZOLE [Concomitant]
  5. WARFARIN [Concomitant]
  6. DIGOXIN [Concomitant]
  7. GABAPENTIN [Concomitant]

REACTIONS (3)
  - Septic shock [Fatal]
  - Peritonitis [Fatal]
  - Unevaluable event [Fatal]
